FAERS Safety Report 6428723-3 (Version None)
Quarter: 2009Q4

REPORT INFORMATION
  Report Type: 
  Country: None (occurrence: None)
  Receive Date: 20091105
  Receipt Date: 20091026
  Transmission Date: 20100525
  Serious: Yes (Death)
  Sender: FDA-Public Use
  Company Number: US-ABBOTT-09P-163-0605163-00

PATIENT
  Sex: Female

DRUGS (2)
  1. SYNTHROID [Suspect]
     Indication: HYPOTHYROIDISM
     Route: 048
  2. UNKNOWN INHALERS [Concomitant]
     Indication: BRONCHITIS
     Route: 055

REACTIONS (1)
  - LUNG NEOPLASM MALIGNANT [None]
